FAERS Safety Report 4890915-2 (Version None)
Quarter: 2006Q1

REPORT INFORMATION
  Report Type: 
  Country: None (occurrence: None)
  Receive Date: 20060123
  Receipt Date: 20060111
  Transmission Date: 20060701
  Serious: Yes (Other)
  Sender: FDA-Public Use
  Company Number: USA040362648

PATIENT
  Age: 70 Year
  Sex: Male
  Weight: 109.1 kg

DRUGS (11)
  1. CIALIS [Suspect]
     Indication: ERECTILE DYSFUNCTION
     Dosage: SEE IMAGE
     Dates: start: 20040301, end: 20040301
  2. CIALIS [Suspect]
     Indication: ERECTILE DYSFUNCTION
     Dosage: SEE IMAGE
     Dates: start: 20040301, end: 20040301
  3. CIALIS [Suspect]
     Indication: ERECTILE DYSFUNCTION
     Dosage: SEE IMAGE
     Dates: start: 20040318, end: 20040301
  4. CIALIS [Suspect]
     Indication: ERECTILE DYSFUNCTION
     Dosage: SEE IMAGE
     Dates: start: 20051208, end: 20051208
  5. ASTELIN [Concomitant]
  6. FLONASE [Concomitant]
  7. HYDROCODONE BITARTRATE [Concomitant]
  8. OXYCODONE (OXYCODONE) [Concomitant]
  9. CARDIZEM (DILTAZEM HYDROCHLORIDE) [Concomitant]
  10. VITMINS-MINERALS THERAPEUTIC (VITAMINS-MINERALS THERAPEUTIC) [Concomitant]
  11. DIGOXIN [Concomitant]

REACTIONS (8)
  - BACK PAIN [None]
  - CHOLECYSTITIS [None]
  - DRUG INEFFECTIVE [None]
  - FLUSHING [None]
  - INSOMNIA [None]
  - MYALGIA [None]
  - PAIN IN EXTREMITY [None]
  - THERAPEUTIC RESPONSE DECREASED [None]
